FAERS Safety Report 7293809-0 (Version None)
Quarter: 2011Q1

REPORT INFORMATION
  Report Type: 
  Country: None (occurrence: None)
  Receive Date: 20110215
  Receipt Date: 20110210
  Transmission Date: 20110831
  Serious: Yes (Hospitalization)
  Sender: FDA-Public Use
  Company Number: DE-ABBOTT-11P-062-0704194-00

PATIENT
  Sex: Male
  Weight: 75 kg

DRUGS (2)
  1. TENOFOVIR NUKLEOSIDAL AND NUCLEOTIDAL INHIBITOR REVERSE TRANSKRIPTASE [Concomitant]
     Indication: PRODUCT USED FOR UNKNOWN INDICATION
     Dosage: 30 TABLETS: NOT ASSURED INTAKE
  2. NORVIR [Suspect]
     Indication: PRODUCT USED FOR UNKNOWN INDICATION
     Dosage: 20 TABLETS: NOT ASSURED INTAKE
     Route: 048

REACTIONS (4)
  - SUICIDAL BEHAVIOUR [None]
  - ILL-DEFINED DISORDER [None]
  - DIARRHOEA [None]
  - VOMITING [None]
